FAERS Safety Report 16647578 (Version 1)
Quarter: 2019Q3

REPORT INFORMATION
  Report Type: Spontaneous
  Country: US (occurrence: US)
  Receive Date: 20190729
  Receipt Date: 20190729
  Transmission Date: 20191004
  Serious: Yes (Other)
  Sender: FDA-Public Use
  Company Number: None

PATIENT
  Age: 86 Year
  Sex: Female
  Weight: 48.15 kg

DRUGS (8)
  1. CLONAZEPAM 0.5MG [Concomitant]
     Active Substance: CLONAZEPAM
  2. ACETAMINOPHEN PRN [Concomitant]
  3. MINERAL OIL. [Concomitant]
     Active Substance: MINERAL OIL
  4. FLUOXETINE [Suspect]
     Active Substance: FLUOXETINE HYDROCHLORIDE
     Indication: DEPRESSION
     Route: 048
  5. ASPIRIN. [Concomitant]
     Active Substance: ASPIRIN
  6. POLYETHYLENE GLYCOL [Concomitant]
     Active Substance: POLYETHYLENE GLYCOLS
  7. LEVOTHYROXINE 100MCG [Concomitant]
     Active Substance: LEVOTHYROXINE
  8. LISINOPRIL. [Concomitant]
     Active Substance: LISINOPRIL

REACTIONS (6)
  - Dermatitis allergic [None]
  - Discharge [None]
  - Skin lesion [None]
  - Erythema [None]
  - Nasal oedema [None]
  - Recurrent cancer [None]

NARRATIVE: CASE EVENT DATE: 20190629
